FAERS Safety Report 8123116-5 (Version None)
Quarter: 2012Q1

REPORT INFORMATION
  Report Type: 
  Country: None (occurrence: None)
  Receive Date: 20120208
  Receipt Date: 20120201
  Transmission Date: 20120608
  Serious: Yes (Other)
  Sender: FDA-Public Use
  Company Number: US-PFIZER INC-2011268963

PATIENT
  Sex: Female

DRUGS (7)
  1. CYCLOBENZAPRINE [Concomitant]
     Dosage: UNK
  2. MELOXICAM [Concomitant]
     Dosage: LONG TERM
  3. PRISTIQ [Suspect]
     Dosage: 50 MG, 1X/DAY
     Route: 048
     Dates: start: 20111010, end: 20111030
  4. IBUPROFEN [Concomitant]
     Dosage: UNK
  5. TRAZODONE [Concomitant]
     Dosage: LONG TERM
  6. HYDROCODONE [Concomitant]
     Dosage: LONG TERM
  7. PRISTIQ [Suspect]
     Indication: DEPRESSION
     Dosage: UNK

REACTIONS (4)
  - DYSKINESIA [None]
  - GRIMACING [None]
  - MUSCLE TWITCHING [None]
  - HYPOAESTHESIA [None]
